FAERS Safety Report 20506152 (Version 3)
Quarter: 2022Q3

REPORT INFORMATION
  Report Type: Spontaneous
  Country: IT (occurrence: IT)
  Receive Date: 20220223
  Receipt Date: 20220706
  Transmission Date: 20221027
  Serious: Yes (Hospitalization)
  Sender: FDA-Public Use
  Company Number: IT-MYLANLABS-2022M1013570

PATIENT
  Age: 62 Year
  Sex: Male

DRUGS (14)
  1. TRAMADOL [Suspect]
     Active Substance: TRAMADOL
     Indication: Pain
     Dosage: 200 MILLIGRAM, QD, PARENTERAL ROUTE
     Route: 065
     Dates: start: 20210611, end: 20210615
  2. TRAMADOL [Suspect]
     Active Substance: TRAMADOL
     Indication: Postoperative analgesia
  3. SUFENTANIL [Suspect]
     Active Substance: SUFENTANIL
     Indication: Postoperative analgesia
     Dosage: 1 MICROGRAM (SOLUTION RATE 5 ML / H)
     Route: 065
     Dates: start: 20210611, end: 20210615
  4. SUFENTANIL [Suspect]
     Active Substance: SUFENTANIL
     Dosage: 1 MILLILITER, QH (1 ML/HR, (UG/ML, ML/H)  )
     Route: 065
     Dates: start: 20210611, end: 20210615
  5. OXYCODONE HYDROCHLORIDE [Suspect]
     Active Substance: OXYCODONE HYDROCHLORIDE
     Indication: Pain
     Dosage: 20 MILLIGRAM, QD (10MG,BID )
     Route: 048
     Dates: start: 20210616
  6. OXYCODONE [Suspect]
     Active Substance: OXYCODONE
     Indication: Postoperative analgesia
     Dosage: 9 MILLIGRAM, QD (9 MG DAILY, 3 MG, TID), PARENTERAL ROUTE
     Route: 065
     Dates: start: 20210616
  7. OXYCODONE [Suspect]
     Active Substance: OXYCODONE
     Indication: Pain
     Dosage: 20 MILLIGRAM, QD (20 MILLIGRAM, DAILY, DAY)
     Route: 065
     Dates: start: 20210616
  8. OXYCODONE [Concomitant]
     Active Substance: OXYCODONE
     Indication: Product used for unknown indication
     Dosage: 9 MILLIGRAM, QD (3 MILLIGRAM TID)
     Route: 042
  9. OXYCODONE [Concomitant]
     Active Substance: OXYCODONE
     Dosage: 20 MILLIGRAM, QD (10 MILLIGRAM BID)
     Route: 065
  10. ROPIVACAINE [Concomitant]
     Active Substance: ROPIVACAINE
     Indication: Postoperative analgesia
     Dosage: 0.125 MILLIGRAM PER MILLILITRE, PARENTERAL ROUTE
     Route: 065
     Dates: start: 20210611, end: 20210615
  11. ACETAMINOPHEN\OXYCODONE HYDROCHLORIDE [Concomitant]
     Active Substance: ACETAMINOPHEN\OXYCODONE HYDROCHLORIDE
     Indication: Product used for unknown indication
     Dosage: 1 DOSAGE FORM, TABLET
     Route: 065
  12. NALDEMEDINE [Concomitant]
     Active Substance: NALDEMEDINE
     Dosage: 200 MICROGRAM, QD
     Route: 065
  13. NALDEMEDINE [Concomitant]
     Active Substance: NALDEMEDINE
     Dosage: UNK, 1 TABLET
     Route: 065
  14. ACETAMINOPHEN [Concomitant]
     Active Substance: ACETAMINOPHEN
     Indication: Pain
     Dosage: 1000 MILLIGRAM
     Route: 048

REACTIONS (4)
  - Condition aggravated [Unknown]
  - Constipation [Recovered/Resolved]
  - Urticaria [Unknown]
  - Drug ineffective [Unknown]
